FAERS Safety Report 8679364 (Version 2)
Quarter: 2012Q4

REPORT INFORMATION
  Report Type: 
  Country: US (occurrence: US)
  Receive Date: 20120724
  Receipt Date: 20120910
  Transmission Date: 20130627
  Serious: Yes (Death, Hospitalization, Other)
  Sender: FDA-Public Use
  Company Number: US-BAYER-2012-073409

PATIENT
  Age: 47 Year
  Sex: Female
  Weight: 64.4 kg

DRUGS (1)
  1. MAGNEVIST [Suspect]
     Indication: NUCLEAR MAGNETIC RESONANCE IMAGING BREAST
     Dosage: 20 ml, 2mL/ sec
     Route: 042
     Dates: start: 20120719, end: 20120719

REACTIONS (4)
  - Cardiac arrest [Fatal]
  - Unresponsive to stimuli [None]
  - Dyspnoea [Not Recovered/Not Resolved]
  - Nausea [Not Recovered/Not Resolved]
